FAERS Safety Report 4391978-3 (Version None)
Quarter: 2004Q3

REPORT INFORMATION
  Report Type: 
  Country: None (occurrence: None)
  Receive Date: 20040701
  Receipt Date: 20040618
  Transmission Date: 20050211
  Serious: Yes (Hospitalization)
  Sender: FDA-Public Use
  Company Number: ATO-04-0598

PATIENT
  Age: 65 Year
  Sex: Male
  Weight: 73.7 kg

DRUGS (1)
  1. TRISENOX [Suspect]
     Indication: MANTLE CELL LYMPHOMA
     Dosage: 18 MG (5X/WK, 2WKS ON, 2WKS OFF), IVI
     Route: 042
     Dates: start: 20040216, end: 20040326

REACTIONS (5)
  - DISEASE PROGRESSION [None]
  - FEBRILE NEUTROPENIA [None]
  - LOBAR PNEUMONIA [None]
  - OPPORTUNISTIC INFECTION [None]
  - PANCYTOPENIA [None]
